FAERS Safety Report 9067377 (Version 1)
Quarter: 2013Q1

REPORT INFORMATION
  Report Type: Report from Study
  Country: US (occurrence: US)
  Receive Date: 20130206
  Receipt Date: 20130206
  Transmission Date: 20140127
  Serious: Yes (Other)
  Sender: FDA-Public Use
  Company Number: US-PURDUE-USA-2013-0098283

PATIENT
  Age: 57 None
  Sex: Female

DRUGS (1)
  1. OXYCONTIN (NDA 22-272) [Suspect]
     Indication: PRODUCT USED FOR UNKNOWN INDICATION
     Dosage: 80 MG, BID
     Route: 048

REACTIONS (3)
  - Chronic obstructive pulmonary disease [Unknown]
  - Intervertebral disc displacement [Not Recovered/Not Resolved]
  - Pain [Unknown]
